FAERS Safety Report 16948974 (Version 2)
Quarter: 2019Q4

REPORT INFORMATION
  Report Type: Spontaneous
  Country: US (occurrence: US)
  Receive Date: 20191023
  Receipt Date: 20191031
  Transmission Date: 20200122
  Serious: No
  Sender: FDA-Public Use
  Company Number: US-JNJFOC-20191017884

PATIENT
  Sex: Male
  Weight: 81.72 kg

DRUGS (2)
  1. MENS ROGAINE EXTRA STRENGTH [Suspect]
     Active Substance: MINOXIDIL
     Indication: ALOPECIA
     Dosage: 4-5 SQUIRTS?THE LAST DATE OF PRODUCT ADMINISTRATION IS 10/OCT/2019.
     Route: 061
     Dates: start: 20190930
  2. MENS ROGAINE EXTRA STRENGTH [Suspect]
     Active Substance: MINOXIDIL
     Dosage: 4-5 SQUIRTS
     Route: 061

REACTIONS (5)
  - Application site pain [Recovered/Resolved]
  - Hair texture abnormal [Recovered/Resolved]
  - Insomnia [Recovered/Resolved]
  - Incorrect dose administered [Unknown]
  - Product formulation issue [Unknown]

NARRATIVE: CASE EVENT DATE: 20190930
